FAERS Safety Report 15245321 (Version 1)
Quarter: 2018Q3

REPORT INFORMATION
  Report Type: Report from Study
  Country: DE (occurrence: DE)
  Receive Date: 20180806
  Receipt Date: 20180806
  Transmission Date: 20181010
  Serious: Yes (Hospitalization)
  Sender: FDA-Public Use
  Company Number: DE-TEVA-2018-DE-935488

PATIENT
  Age: 78 Year
  Sex: Male
  Weight: 73 kg

DRUGS (15)
  1. SEREVENT DISKUS [Concomitant]
     Active Substance: SALMETEROL XINAFOATE
     Indication: ASTHMA-CHRONIC OBSTRUCTIVE PULMONARY DISEASE OVERLAP SYNDROME
     Dosage: 50 MICROGRAM DAILY; 50 MICROGRAM
     Route: 055
  2. TRAMAL LONG [Concomitant]
     Active Substance: TRAMADOL
     Indication: PAIN
     Dosage: 200 MILLIGRAM DAILY; 200 MILLIGRAM
     Route: 048
     Dates: start: 20171016
  3. OXYCODONE [Concomitant]
     Active Substance: OXYCODONE
     Dosage: 90 MILLIGRAM DAILY; 90 MILLIGRAM
     Route: 048
     Dates: start: 20171012, end: 20171016
  4. ZOLEDRON [Concomitant]
     Active Substance: ZOLEDRONIC ACID
     Indication: PROPHYLAXIS
     Dosage: 8 MILLIGRAM DAILY; 8 MILLIGRAM
     Route: 041
     Dates: start: 20170703
  5. PANTOZOL [Concomitant]
     Active Substance: PANTOPRAZOLE SODIUM
     Indication: PROPHYLAXIS
     Dosage: 20 MILLIGRAM DAILY; 20 MILLIGRAM
     Route: 065
     Dates: start: 201707
  6. REVLIMID [Suspect]
     Active Substance: LENALIDOMIDE
     Indication: PLASMA CELL MYELOMA
     Route: 048
     Dates: start: 20170704, end: 20180117
  7. IDEOS [Concomitant]
     Active Substance: CALCIUM CARBONATE\CHOLECALCIFEROL
     Indication: PROPHYLAXIS
     Dosage: 500 MILLIGRAM DAILY; 500 MILLIGRAM
     Route: 048
     Dates: start: 20170802, end: 20180118
  8. OXYCODONE [Concomitant]
     Active Substance: OXYCODONE
     Indication: ASTHMA-CHRONIC OBSTRUCTIVE PULMONARY DISEASE OVERLAP SYNDROME
     Dosage: 40 MILLIGRAM DAILY; 40 MILLIGRAM
     Route: 048
  9. BUDIAIR [Concomitant]
     Active Substance: BUDESONIDE
     Indication: ASTHMA-CHRONIC OBSTRUCTIVE PULMONARY DISEASE OVERLAP SYNDROME
     Dosage: 400 MICROGRAM DAILY; 400 MICROGRAM
     Route: 055
  10. VERAPAMIL [Concomitant]
     Active Substance: VERAPAMIL HYDROCHLORIDE
     Indication: HYPERTENSION
     Dosage: 480 MILLIGRAM DAILY; 480 MILLIGRAM
     Route: 048
  11. ASS RATIOPHARM [Concomitant]
     Active Substance: ASPIRIN
     Indication: PROPHYLAXIS
     Dosage: 100 MILLIGRAM DAILY; 100 MILLIGRAM
     Route: 048
     Dates: start: 20180110
  12. DEXAMETHASONE. [Suspect]
     Active Substance: DEXAMETHASONE
     Indication: PLASMA CELL MYELOMA
     Route: 048
     Dates: start: 20170704, end: 20180117
  13. COTRIUM [Concomitant]
     Indication: PROPHYLAXIS
     Dosage: 480 MILLIGRAM DAILY; 480 MILLIGRAM
     Route: 065
     Dates: start: 20170703, end: 20171207
  14. HYDROCHLOROTHIAZIDE. [Concomitant]
     Active Substance: HYDROCHLOROTHIAZIDE
     Indication: HYPERTENSION
     Dosage: 25 MILLIGRAM DAILY; 25 MILLIGRAM
     Route: 041
     Dates: start: 20170703
  15. ASS RATIOPHARM [Concomitant]
     Active Substance: ASPIRIN
     Dosage: 100 MILLIGRAM DAILY; 100 MILLIGRAM
     Route: 048
     Dates: start: 20170703

REACTIONS (2)
  - Angina unstable [Not Recovered/Not Resolved]
  - Infective exacerbation of chronic obstructive airways disease [Not Recovered/Not Resolved]

NARRATIVE: CASE EVENT DATE: 20180102
